FAERS Safety Report 16030507 (Version 1)
Quarter: 2019Q1

REPORT INFORMATION
  Report Type: Spontaneous
  Country: US (occurrence: US)
  Receive Date: 20190304
  Receipt Date: 20190304
  Transmission Date: 20190418
  Serious: No
  Sender: FDA-Public Use
  Company Number: PHEH2019US008459

PATIENT
  Sex: Male
  Weight: 108.86 kg

DRUGS (2)
  1. QUILLICHEW ER [Suspect]
     Active Substance: METHYLPHENIDATE HYDROCHLORIDE
     Indication: ATTENTION DEFICIT/HYPERACTIVITY DISORDER
     Dosage: 40 MG, QD (IN MORNING)
     Route: 048
     Dates: start: 20170928
  2. RISPERIDONE. [Suspect]
     Active Substance: RISPERIDONE
     Indication: MENTAL DISORDER
     Dosage: 2 DF, QD (AT BED TIME)
     Route: 065

REACTIONS (2)
  - Dyskinesia [Unknown]
  - Musculoskeletal stiffness [Unknown]
